FAERS Safety Report 9925086 (Version 1)
Quarter: 2014Q1

REPORT INFORMATION
  Report Type: Spontaneous
  Country: US (occurrence: US)
  Receive Date: 20140226
  Receipt Date: 20140226
  Transmission Date: 20141002
  Serious: Yes (Other)
  Sender: FDA-Public Use
  Company Number: US-ASTRAZENECA-2014SE11952

PATIENT
  Age: 56 Year
  Sex: Male
  Weight: 68 kg

DRUGS (5)
  1. SEROQUEL [Suspect]
     Indication: AFFECTIVE DISORDER
     Route: 048
     Dates: start: 201309, end: 20140216
  2. DESSICATED THYROID 0.5 GRAINS [Concomitant]
     Indication: THYROID DISORDER
     Dosage: TWICE A DAY
     Dates: start: 201311
  3. KLONAZEPAM [Concomitant]
  4. ALDASTERONE [Concomitant]
     Indication: ORTHOSTATIC HYPOTENSION
  5. CORTES [Concomitant]
     Indication: ORTHOSTATIC HYPOTENSION

REACTIONS (6)
  - Orthostatic hypotension [Not Recovered/Not Resolved]
  - Anaemia [Not Recovered/Not Resolved]
  - Hypothyroidism [Not Recovered/Not Resolved]
  - Adverse event [Unknown]
  - Drug dose omission [Unknown]
  - Off label use [Unknown]
